FAERS Safety Report 9058857 (Version 1)
Quarter: 2013Q1

REPORT INFORMATION
  Report Type: Spontaneous
  Country: SE (occurrence: SE)
  Receive Date: 20130204
  Receipt Date: 20130204
  Transmission Date: 20140127
  Serious: Yes (Hospitalization)
  Sender: FDA-Public Use
  Company Number: SE-009507513-1301SWE013793

PATIENT
  Age: 78 Year
  Sex: Male

DRUGS (2)
  1. COSOPT [Suspect]
     Route: 047
  2. XALCOM [Suspect]
     Dosage: UNK
     Dates: start: 20130102

REACTIONS (4)
  - Fatigue [Recovered/Resolved with Sequelae]
  - Headache [Recovered/Resolved with Sequelae]
  - Facial pain [Recovered/Resolved with Sequelae]
  - Toothache [Recovered/Resolved with Sequelae]
